FAERS Safety Report 7020098-4 (Version None)
Quarter: 2010Q3

REPORT INFORMATION
  Report Type: 
  Country: None (occurrence: None)
  Receive Date: 20100929
  Receipt Date: 20100915
  Transmission Date: 20110219
  Serious: Yes (Death)
  Sender: FDA-Public Use
  Company Number: FR-WYE-G06734710

PATIENT
  Age: 76 Year
  Sex: Male

DRUGS (4)
  1. PIPERACILLIN AND TAZOBACTAM [Suspect]
     Dosage: UNKNOWN
     Route: 042
  2. TARGOCID [Suspect]
     Dosage: UNKNOWN
  3. IMIPENEM AND CILASTATIN [Suspect]
     Dosage: UNKNOWN
  4. VFEND [Suspect]
     Dosage: UNKNOWN

REACTIONS (1)
  - CLOSTRIDIUM DIFFICILE COLITIS [None]
